APPROVED DRUG PRODUCT: ZOLADEX
Active Ingredient: GOSERELIN ACETATE
Strength: EQ 10.8MG BASE
Dosage Form/Route: IMPLANT;IMPLANTATION
Application: N020578 | Product #001
Applicant: TERSERA THERAPEUTICS LLC
Approved: Jan 11, 1996 | RLD: Yes | RS: Yes | Type: RX